FAERS Safety Report 23662484 (Version 1)
Quarter: 2024Q1

REPORT INFORMATION
  Report Type: Spontaneous
  Country: US (occurrence: US)
  Receive Date: 20240322
  Receipt Date: 20240322
  Transmission Date: 20240410
  Serious: No
  Sender: FDA-Public Use
  Company Number: US-AMNEAL PHARMACEUTICALS-2023-AMRX-02393

PATIENT
  Sex: Female
  Weight: 70.295 kg

DRUGS (1)
  1. DEXTROMETHORPHAN\PROMETHAZINE [Suspect]
     Active Substance: DEXTROMETHORPHAN\PROMETHAZINE
     Indication: Cough
     Dosage: UNK
     Route: 048
     Dates: start: 20230629, end: 20230703

REACTIONS (2)
  - Drug ineffective [Unknown]
  - Product colour issue [Unknown]
